FAERS Safety Report 10267787 (Version 1)
Quarter: 2014Q2

REPORT INFORMATION
  Report Type: Spontaneous
  Country: IT (occurrence: IT)
  Receive Date: 20140630
  Receipt Date: 20140630
  Transmission Date: 20141212
  Serious: Yes (Other)
  Sender: FDA-Public Use
  Company Number: IT-MYLANLABS-2014S1014826

PATIENT
  Age: 49 Year
  Sex: Female

DRUGS (2)
  1. ALPRAZOLAM [Suspect]
     Indication: PRODUCT USED FOR UNKNOWN INDICATION
     Dosage: 20 DF TOTAL
     Route: 048
     Dates: start: 20131019, end: 20131019
  2. DELORAZEPAM [Suspect]
     Indication: PRODUCT USED FOR UNKNOWN INDICATION
     Dosage: 100 DF TOTAL
     Route: 048
     Dates: start: 20131019, end: 20131019

REACTIONS (4)
  - Drug abuse [Recovered/Resolved]
  - Overdose [Recovered/Resolved]
  - Malaise [Recovered/Resolved]
  - Poisoning deliberate [Recovered/Resolved]
